FAERS Safety Report 7220418-1 (Version None)
Quarter: 2011Q1

REPORT INFORMATION
  Report Type: 
  Country: None (occurrence: None)
  Receive Date: 20110111
  Receipt Date: 20110110
  Transmission Date: 20110831
  Serious: Yes (Hospitalization)
  Sender: FDA-Public Use
  Company Number: FR-ABBOTT-11P-056-0695354-00

PATIENT
  Age: 15 Year
  Sex: Female

DRUGS (5)
  1. TERCIAN [Suspect]
     Indication: PRODUCT USED FOR UNKNOWN INDICATION
     Route: 048
     Dates: start: 20070501
  2. VARNOLINE [Suspect]
     Indication: ORAL CONTRACEPTION
     Route: 048
     Dates: start: 20100401, end: 20101203
  3. ABILIFY [Suspect]
     Indication: PRODUCT USED FOR UNKNOWN INDICATION
     Route: 048
     Dates: start: 20080101, end: 20101115
  4. ABILIFY [Suspect]
     Route: 048
     Dates: start: 20101115
  5. DEPAKOTE [Suspect]
     Indication: PRODUCT USED FOR UNKNOWN INDICATION
     Route: 048
     Dates: start: 20090101

REACTIONS (3)
  - CEREBRAL VENOUS THROMBOSIS [None]
  - VOMITING [None]
  - HEADACHE [None]
